FAERS Safety Report 13475418 (Version 4)
Quarter: 2017Q4

REPORT INFORMATION
  Report Type: Report from Study
  Country: US (occurrence: US)
  Receive Date: 20170424
  Receipt Date: 20171227
  Transmission Date: 20180320
  Serious: Yes (Hospitalization)
  Sender: FDA-Public Use
  Company Number: US-ACTELION-A-US2016-143486

PATIENT
  Age: 55 Year
  Sex: Female
  Weight: 106.58 kg

DRUGS (3)
  1. REMODULIN [Suspect]
     Active Substance: TREPROSTINIL
     Indication: PRODUCT USED FOR UNKNOWN INDICATION
     Route: 042
  2. TRACLEER [Suspect]
     Active Substance: BOSENTAN
     Indication: PULMONARY ARTERIAL HYPERTENSION
     Dosage: 125 MG, BID
     Route: 048
     Dates: start: 20160930
  3. DILTIAZEM. [Concomitant]
     Active Substance: DILTIAZEM

REACTIONS (15)
  - Device related infection [Unknown]
  - Dyspnoea [Unknown]
  - Pain [Unknown]
  - Catheter site erythema [Unknown]
  - Medical device change [Unknown]
  - Sarcoidosis [Unknown]
  - Headache [Unknown]
  - Diarrhoea [Unknown]
  - Nausea [Unknown]
  - Staphylococcal infection [Unknown]
  - Lymphadenopathy [Unknown]
  - Vomiting [Unknown]
  - Hypoxia [Unknown]
  - Irritable bowel syndrome [Unknown]
  - Catheter site inflammation [Unknown]

NARRATIVE: CASE EVENT DATE: 201712
